FAERS Safety Report 8213852-4 (Version None)
Quarter: 2012Q1

REPORT INFORMATION
  Report Type: 
  Country: None (occurrence: None)
  Receive Date: 20120316
  Receipt Date: 20120308
  Transmission Date: 20120608
  Serious: No
  Sender: FDA-Public Use
  Company Number: US-BIOGENIDEC-2012BI008517

PATIENT
  Age: 47 Year
  Sex: Female

DRUGS (2)
  1. TYSABRI [Suspect]
     Indication: MULTIPLE SCLEROSIS
     Route: 042
     Dates: start: 20120213
  2. AVONEX [Concomitant]
     Indication: MULTIPLE SCLEROSIS
     Route: 030

REACTIONS (7)
  - GAIT DISTURBANCE [None]
  - MUSCULAR WEAKNESS [None]
  - FATIGUE [None]
  - HEADACHE [None]
  - PARAESTHESIA [None]
  - BALANCE DISORDER [None]
  - GENERAL SYMPTOM [None]
